FAERS Safety Report 18886174 (Version 1)
Quarter: 2021Q1

REPORT INFORMATION
  Report Type: Spontaneous
  Country: US (occurrence: US)
  Receive Date: 20210212
  Receipt Date: 20210212
  Transmission Date: 20210420
  Serious: No
  Sender: FDA-Public Use
  Company Number: US-SA-2021SA039116

PATIENT
  Age: 44 Year
  Sex: Female

DRUGS (11)
  1. ESOMEPRA [Concomitant]
     Active Substance: ESOMEPRAZOLE
  2. KETOCONAZOLE. [Concomitant]
     Active Substance: KETOCONAZOLE
  3. QUETIAPINE. [Concomitant]
     Active Substance: QUETIAPINE
  4. CLONAZEPAM. [Concomitant]
     Active Substance: CLONAZEPAM
  5. LIDOCAINE. [Concomitant]
     Active Substance: LIDOCAINE
  6. CARBAMAZEPIN [Concomitant]
     Active Substance: CARBAMAZEPINE
  7. GABAPENTIN. [Concomitant]
     Active Substance: GABAPENTIN
  8. LAMOTRIGINE. [Concomitant]
     Active Substance: LAMOTRIGINE
  9. CYCLOBENZAPRIN [Concomitant]
     Active Substance: CYCLOBENZAPRINE
  10. EMGALITY [Concomitant]
     Active Substance: GALCANEZUMAB-GNLM
  11. DUPIXENT [Suspect]
     Active Substance: DUPILUMAB
     Indication: DERMATITIS ATOPIC
     Dosage: 300 MG, QOW
     Route: 058
     Dates: start: 20190323

REACTIONS (1)
  - Injection site fibrosis [Not Recovered/Not Resolved]
